FAERS Safety Report 8340249 (Version 3)
Quarter: 2012Q4

REPORT INFORMATION
  Report Type: 
  Country: AU (occurrence: AU)
  Receive Date: 20120117
  Receipt Date: 20121124
  Transmission Date: 20130627
  Serious: Yes (Death, Other)
  Sender: FDA-Public Use
  Company Number: PHHY2012AU002604

PATIENT
  Age: 87 Year
  Sex: Female
  Weight: 70 kg

DRUGS (11)
  1. ACLASTA [Suspect]
     Indication: OSTEOPOROSIS
     Dosage: 5 mg, UNK
     Route: 042
     Dates: start: 20120109
  2. ARICEPT [Concomitant]
     Dosage: 1 DF, UNK
  3. AZOPT [Concomitant]
     Dosage: 5 ml, UNK
  4. CITALOPRAM [Concomitant]
     Dosage: 1 DF, UNK
  5. ELOCON [Concomitant]
  6. ENDEP [Concomitant]
  7. OROXINE [Concomitant]
  8. PANAMAX [Concomitant]
     Dosage: 1 DF, BID
  9. PANTOPRAZOLE SODIUM [Concomitant]
  10. RANITIDINE [Concomitant]
  11. XALATAN [Concomitant]

REACTIONS (9)
  - Death [Fatal]
  - Urinary tract infection [Unknown]
  - Pyrexia [Unknown]
  - Circulatory collapse [Recovered/Resolved]
  - Dementia [Recovering/Resolving]
  - Mental impairment [Recovered/Resolved]
  - Dehydration [Unknown]
  - Asthenia [Recovering/Resolving]
  - Dysstasia [Recovering/Resolving]
